FAERS Safety Report 9708233 (Version 3)
Quarter: 2014Q2

REPORT INFORMATION
  Report Type: Report from Study
  Country: JP (occurrence: JP)
  Receive Date: 20131125
  Receipt Date: 20140430
  Transmission Date: 20141212
  Serious: No
  Sender: FDA-Public Use
  Company Number: JP-JNJFOC-20131109519

PATIENT
  Age: 42 Year
  Sex: Male
  Weight: 95 kg

DRUGS (10)
  1. STELARA [Suspect]
     Indication: PSORIASIS
     Route: 058
     Dates: start: 20130621, end: 20130621
  2. STELARA [Suspect]
     Indication: PSORIASIS
     Route: 058
     Dates: start: 20130328, end: 20130328
  3. STELARA [Suspect]
     Indication: PSORIASIS
     Route: 058
     Dates: start: 20130301, end: 20130301
  4. STELARA [Suspect]
     Indication: PSORIASIS
     Route: 058
     Dates: start: 20130913
  5. ADEROXAL [Suspect]
     Indication: PROPHYLAXIS
     Route: 048
     Dates: start: 20130301
  6. ADEROXAL [Suspect]
     Indication: PROPHYLAXIS
     Route: 048
     Dates: start: 20130208, end: 20130228
  7. ISCOTIN [Suspect]
     Indication: PROPHYLAXIS
     Route: 048
     Dates: start: 20130301
  8. ISCOTIN [Suspect]
     Indication: PROPHYLAXIS
     Route: 048
     Dates: start: 20130208, end: 20130228
  9. MYSER [Concomitant]
     Indication: PSORIASIS
     Route: 061
  10. DOVONEX [Concomitant]
     Indication: PSORIASIS
     Route: 061

REACTIONS (1)
  - Blood bilirubin increased [Recovered/Resolved]
